FAERS Safety Report 23657353 (Version 4)
Quarter: 2024Q3

REPORT INFORMATION
  Report Type: Spontaneous
  Country: CO (occurrence: CO)
  Receive Date: 20240321
  Receipt Date: 20240829
  Transmission Date: 20241016
  Serious: Yes (Other)
  Sender: GLAXOSMITHKLINE
  Company Number: CO-GLAXOSMITHKLINE-CO2024AMR035603

PATIENT

DRUGS (2)
  1. MEPOLIZUMAB [Suspect]
     Active Substance: MEPOLIZUMAB
     Indication: Asthma
     Dosage: 100 MG, Q4W, INJECTION
     Dates: start: 20231213
  2. MEPOLIZUMAB [Suspect]
     Active Substance: MEPOLIZUMAB
     Dosage: 100 MG EVERY 35 DAYS
     Dates: start: 20231213

REACTIONS (6)
  - Cataract [Recovering/Resolving]
  - Illness [Recovering/Resolving]
  - Discomfort [Not Recovered/Not Resolved]
  - Influenza [Recovered/Resolved]
  - Product use in unapproved indication [Unknown]
  - Off label use [Recovered/Resolved]

NARRATIVE: CASE EVENT DATE: 20240314
